FAERS Safety Report 7623186-4 (Version None)
Quarter: 2011Q3

REPORT INFORMATION
  Report Type: 
  Country: None (occurrence: None)
  Receive Date: 20110720
  Receipt Date: 20110706
  Transmission Date: 20111222
  Serious: Yes (Other)
  Sender: FDA-Public Use
  Company Number: US-JNJFOC-20110703495

PATIENT
  Age: 58 Year
  Sex: Male
  Weight: 127.01 kg

DRUGS (4)
  1. BENADRYL [Suspect]
     Route: 048
  2. BENADRYL [Suspect]
     Indication: PRURITUS
     Route: 048
     Dates: end: 20110705
  3. ^ASTHMA INHALER^ [Concomitant]
     Indication: ASTHMA
     Route: 065
  4. HERBS (NOS) [Concomitant]
     Indication: ROUTINE HEALTH MAINTENANCE
     Route: 065

REACTIONS (1)
  - DYSPNOEA [None]
